FAERS Safety Report 5324984-2 (Version None)
Quarter: 2007Q2

REPORT INFORMATION
  Report Type: 
  Country: None (occurrence: None)
  Receive Date: 20070509
  Receipt Date: 20070426
  Transmission Date: 20071010
  Serious: Yes (Other)
  Sender: FDA-Public Use
  Company Number: 4353

PATIENT
  Age: 33 Year
  Sex: Female
  Weight: 48.0813 kg

DRUGS (1)
  1. AMNESTEEM [Suspect]
     Indication: ACNE
     Dosage: 50 MG, QD, PO
     Route: 048
     Dates: start: 20061124, end: 20070402

REACTIONS (1)
  - OVARIAN CYST [None]
